FAERS Safety Report 5930682-4 (Version None)
Quarter: 2008Q4

REPORT INFORMATION
  Report Type: 
  Country: None (occurrence: None)
  Receive Date: 20081024
  Receipt Date: 20081024
  Transmission Date: 20090506
  Serious: No
  Sender: FDA-Public Use
  Company Number: None

PATIENT
  Sex: Female
  Weight: 63.5036 kg

DRUGS (5)
  1. ABILIFY [Suspect]
     Indication: PSYCHOTIC DISORDER
     Dosage: 10MG QD PO
     Route: 048
     Dates: start: 20080417
  2. MIRTAZAPINE [Concomitant]
  3. MOM [Concomitant]
  4. DULCOLAX [Concomitant]
  5. CLONAZEPAM [Concomitant]

REACTIONS (2)
  - MUSCLE RIGIDITY [None]
  - MUTISM [None]
